FAERS Safety Report 8168266 (Version 3)
Quarter: 2014Q2

REPORT INFORMATION
  Report Type: Spontaneous
  Country: US (occurrence: US)
  Receive Date: 20111004
  Receipt Date: 20140422
  Transmission Date: 20141212
  Serious: Yes (Death, Other)
  Sender: FDA-Public Use
  Company Number: US-PFIZER INC-2011234027

PATIENT
  Age: 51 Year
  Sex: Male
  Weight: 108 kg

DRUGS (3)
  1. RAPAMUNE [Suspect]
     Indication: LIVER TRANSPLANT REJECTION
     Dosage: UNK
     Route: 048
     Dates: start: 200301
  2. RAPAMUNE [Suspect]
     Indication: IMMUNOSUPPRESSANT DRUG THERAPY
     Dosage: 2 MG, 1X/DAY
     Route: 048
     Dates: start: 200304, end: 20061127
  3. RAPAMUNE [Suspect]
     Indication: RENAL IMPAIRMENT

REACTIONS (3)
  - Interstitial lung disease [Fatal]
  - Pulmonary fibrosis [Fatal]
  - Off label use [Unknown]
